FAERS Safety Report 5498711-2 (Version None)
Quarter: 2007Q4

REPORT INFORMATION
  Report Type: 
  Country: None (occurrence: None)
  Receive Date: 20071026
  Receipt Date: 20070807
  Transmission Date: 20080405
  Serious: No
  Sender: FDA-Public Use
  Company Number: A0662493A

PATIENT
  Age: 55 Year
  Sex: Female

DRUGS (2)
  1. ADVAIR DISKUS 100/50 [Suspect]
     Indication: ASTHMA
     Dosage: 1PUFF TWICE PER DAY
     Route: 055
     Dates: start: 20070101
  2. PIROXICAM [Concomitant]

REACTIONS (4)
  - BRONCHITIS [None]
  - DYSPHONIA [None]
  - LARYNGITIS [None]
  - PHARYNGITIS [None]
